FAERS Safety Report 9195348 (Version 1)
Quarter: 2013Q1

REPORT INFORMATION
  Report Type: Spontaneous
  Country: US (occurrence: US)
  Receive Date: 20130328
  Receipt Date: 20130328
  Transmission Date: 20140127
  Serious: No
  Sender: FDA-Public Use
  Company Number: US-ALLERGAN-1214668US

PATIENT
  Sex: Female

DRUGS (4)
  1. LUMIGAN [Suspect]
     Indication: GLAUCOMA
     Dosage: 2 GTT, QHS
     Route: 047
     Dates: start: 201204
  2. TIMOLOL                            /00371202/ [Concomitant]
     Indication: GLAUCOMA
     Dosage: 2 GTT, QAM
     Route: 047
     Dates: start: 201204
  3. CLARITIN                           /00917501/ [Concomitant]
     Indication: SEASONAL ALLERGY
     Dosage: UNK UNK, PRN
  4. VITAMINS [Concomitant]
     Indication: SUPPLEMENTATION THERAPY
     Dosage: UNK
     Route: 048

REACTIONS (1)
  - Dark circles under eyes [Not Recovered/Not Resolved]
